FAERS Safety Report 9169295 (Version 1)
Quarter: 2013Q1

REPORT INFORMATION
  Report Type: Spontaneous
  Country: US (occurrence: US)
  Receive Date: 20130318
  Receipt Date: 20130318
  Transmission Date: 20140127
  Serious: Yes (Death)
  Sender: FDA-Public Use
  Company Number: US-PFIZER INC-2013007128

PATIENT
  Age: 57 Year
  Sex: Male

DRUGS (2)
  1. VFEND [Suspect]
     Dosage: 200 MG, 2X/DAY
     Dates: start: 20120725, end: 20121014
  2. VFEND [Suspect]
     Dosage: 200 MG, 2X/DAY
     Dates: start: 201301

REACTIONS (1)
  - Acute myeloid leukaemia [Fatal]
